FAERS Safety Report 17004622 (Version 1)
Quarter: 2019Q4

REPORT INFORMATION
  Report Type: Spontaneous
  Country: US (occurrence: US)
  Receive Date: 20191107
  Receipt Date: 20191107
  Transmission Date: 20200122
  Serious: Yes (Other)
  Sender: FDA-Public Use
  Company Number: US-PFIZER INC-2019478056

PATIENT
  Age: 28 Year
  Sex: Female
  Weight: 65.77 kg

DRUGS (3)
  1. BACLOFEN. [Concomitant]
     Active Substance: BACLOFEN
     Indication: MUSCLE RELAXANT THERAPY
     Dosage: UNK
     Dates: start: 20191021
  2. LORAZEPAM. [Suspect]
     Active Substance: LORAZEPAM
     Dosage: UNK
     Dates: start: 20191031
  3. LORAZEPAM. [Suspect]
     Active Substance: LORAZEPAM
     Indication: PANIC ATTACK
     Dosage: 1 MG, UNK (TOOK IT LESS THAN PRESCRIBED/ONE WEEK FOR 8-9 DAYS STRAIGHT/EVERY 2 DAYS)
     Dates: end: 20191021

REACTIONS (17)
  - Off label use [Unknown]
  - Product use in unapproved indication [Unknown]
  - Intentional product misuse [Unknown]
  - Somnolence [Recovered/Resolved]
  - Pain [Unknown]
  - Nausea [Unknown]
  - Delirium [Recovered/Resolved]
  - Anxiety [Unknown]
  - Drug dependence [Unknown]
  - Fatigue [Unknown]
  - Pyrexia [Unknown]
  - Tremor [Unknown]
  - Irritability [Unknown]
  - Insomnia [Unknown]
  - Feeling abnormal [Unknown]
  - Vision blurred [Unknown]
  - Confusional state [Unknown]

NARRATIVE: CASE EVENT DATE: 201910
